FAERS Safety Report 5421785-1 (Version None)
Quarter: 2007Q3

REPORT INFORMATION
  Report Type: 
  Country: None (occurrence: None)
  Receive Date: 20070719
  Receipt Date: 20060809
  Transmission Date: 20080115
  Serious: Yes (Other)
  Sender: FDA-Public Use
  Company Number: PHEH2006US08314

PATIENT
  Age: 64 Year
  Sex: Female

DRUGS (1)
  1. LOTENSIN HCT [Suspect]
     Indication: HYPERTENSION
     Dosage: 10 MG BENAZ/12.5
     Dates: start: 19860101, end: 20060627

REACTIONS (5)
  - ANGIOEDEMA [None]
  - DYSPHONIA [None]
  - GLOSSODYNIA [None]
  - LIP SWELLING [None]
  - SWOLLEN TONGUE [None]
